FAERS Safety Report 7247142-3 (Version None)
Quarter: 2011Q1

REPORT INFORMATION
  Report Type: 
  Country: None (occurrence: None)
  Receive Date: 20110127
  Receipt Date: 20100913
  Transmission Date: 20110831
  Serious: No
  Sender: FDA-Public Use
  Company Number: US-BAUSCH-2010BL005151

PATIENT
  Age: 87 Year
  Sex: Male

DRUGS (2)
  1. ALAWAY [Suspect]
     Indication: EYE PRURITUS
     Route: 047
     Dates: start: 20100913
  2. ADVANCED EYE RELIEF/NIGHT TIME LUBRICANT EYE OINTMENT PF [Concomitant]
     Indication: DRY EYE
     Route: 047
     Dates: start: 20000101

REACTIONS (1)
  - DRUG INEFFECTIVE [None]
